FAERS Safety Report 14681793 (Version 5)
Quarter: 2022Q2

REPORT INFORMATION
  Report Type: Spontaneous
  Country: US (occurrence: US)
  Receive Date: 20180326
  Receipt Date: 20220405
  Transmission Date: 20220720
  Serious: Yes (Death, Hospitalization, Other)
  Sender: FDA-Public Use
  Company Number: US-PFIZER INC-2018119954

PATIENT
  Age: 68 Year
  Sex: Female
  Weight: 58.97 kg

DRUGS (9)
  1. VFEND [Suspect]
     Active Substance: VORICONAZOLE
     Indication: Aspergillus infection
     Dosage: 200 MG, 2X/DAY
     Route: 048
  2. VFEND [Suspect]
     Active Substance: VORICONAZOLE
     Indication: Lung transplant
     Dosage: 200 MG, 2X/DAY (VFEND 200 MG ORAL TABLET 1 TABLET ORALLY Q12H, QTY 120)
     Dates: start: 201705, end: 201812
  3. VFEND [Suspect]
     Active Substance: VORICONAZOLE
     Dosage: UNK
  4. VFEND [Suspect]
     Active Substance: VORICONAZOLE
     Dosage: (VFEND 50 MG ORAL TABLET 2 TABLET ORALLY QAM/VFEND 200 MG ORAL TABLET 1 TABLET ORALLY Q12H, QTY 120
     Route: 048
  5. SEPTRA [Concomitant]
     Active Substance: SULFAMETHOXAZOLE\TRIMETHOPRIM
     Indication: Antibiotic therapy
     Dosage: [SULFAMETHOXAZOLE 400MG]/ [TRIMETHOPRIM 80MG] ONE TABLET MONDAY, WEDNESDAY AND FRIDAY
     Dates: start: 201705
  6. VALCYTE [Concomitant]
     Active Substance: VALGANCICLOVIR HYDROCHLORIDE
     Indication: Antiviral treatment
     Dosage: 450 MG, 2X/DAY
     Dates: start: 201705, end: 201801
  7. NYSTATIN [Concomitant]
     Active Substance: NYSTATIN
     Dosage: 100,000 USE PER ML SUSPENSION I TAKE 5 ML TWICE A DAY BY MOUTH
     Route: 048
     Dates: start: 201705, end: 201902
  8. PREDNISONE [Concomitant]
     Active Substance: PREDNISONE
     Dosage: UNK
     Dates: start: 201705
  9. SULFAMETHOXAZOLE [Concomitant]
     Active Substance: SULFAMETHOXAZOLE
     Dosage: UNK
     Dates: start: 201705

REACTIONS (6)
  - Death [Fatal]
  - Lung transplant rejection [Recovered/Resolved]
  - White blood cell count decreased [Recovered/Resolved]
  - Condition aggravated [Recovered/Resolved]
  - Drug ineffective [Recovered/Resolved]
  - Product prescribing error [Unknown]

NARRATIVE: CASE EVENT DATE: 20171201
